FAERS Safety Report 10093393 (Version 1)
Quarter: 2014Q2

REPORT INFORMATION
  Report Type: Spontaneous
  Country: US (occurrence: US)
  Receive Date: 20140421
  Receipt Date: 20140421
  Transmission Date: 20141212
  Serious: No
  Sender: FDA-Public Use
  Company Number: US-SA-2014SA016360

PATIENT
  Age: 73 Year
  Sex: Female
  Weight: 65.77 kg

DRUGS (6)
  1. ALLEGRA [Suspect]
     Indication: RHINORRHOEA
     Route: 048
  2. ALLEGRA [Suspect]
     Indication: SNEEZING
     Route: 048
  3. ALLEGRA [Suspect]
     Indication: EYE PRURITUS
     Route: 048
  4. ALLEGRA [Suspect]
     Indication: SNEEZING
     Route: 048
  5. ALLEGRA [Suspect]
     Indication: RHINORRHOEA
     Route: 048
  6. ALLEGRA [Suspect]
     Indication: EYE PRURITUS
     Route: 048

REACTIONS (2)
  - Sinus congestion [Not Recovered/Not Resolved]
  - Drug ineffective [Unknown]
